FAERS Safety Report 19072307 (Version 4)
Quarter: 2021Q2

REPORT INFORMATION
  Report Type: Report from Study
  Country: US (occurrence: US)
  Receive Date: 20210330
  Receipt Date: 20210617
  Transmission Date: 20210717
  Serious: Yes (Other)
  Sender: FDA-Public Use
  Company Number: US-PFIZER INC-2021318195

PATIENT
  Age: 59 Year
  Sex: Female

DRUGS (3)
  1. IBRANCE [Suspect]
     Active Substance: PALBOCICLIB
     Indication: BREAST CANCER FEMALE
     Dosage: 125 MG, DAILY, 21 DAYS ON AND 7 DAYS OFF
     Dates: start: 2018
  2. IBRANCE [Suspect]
     Active Substance: PALBOCICLIB
     Dosage: 75 MG, DAILY FOR 14 DAYS ON, 14 DAYS OFF
     Route: 048
     Dates: start: 202012
  3. FASLODEX [Concomitant]
     Active Substance: FULVESTRANT

REACTIONS (20)
  - White blood cell count decreased [Unknown]
  - Platelet count decreased [Unknown]
  - Rash pruritic [Unknown]
  - Rash papular [Unknown]
  - Rash [Unknown]
  - Dry skin [Unknown]
  - Fear [Unknown]
  - Weight decreased [Unknown]
  - Off label use [Unknown]
  - Scab [Unknown]
  - Neutrophil count decreased [Unknown]
  - Product use complaint [Unknown]
  - Vulvovaginal dryness [Unknown]
  - Choking [Unknown]
  - Fatigue [Unknown]
  - Dysphagia [Unknown]
  - Red blood cell count decreased [Unknown]
  - Skin depigmentation [Unknown]
  - Product use issue [Unknown]
  - Dyspnoea [Unknown]

NARRATIVE: CASE EVENT DATE: 20210304
